FAERS Safety Report 8988479 (Version 1)
Quarter: 2012Q4

REPORT INFORMATION
  Report Type: Spontaneous
  Country: GB (occurrence: None)
  Receive Date: 20121218
  Receipt Date: 20121218
  Transmission Date: 20130627
  Serious: Yes (Hospitalization)
  Sender: FDA-Public Use
  Company Number: 2012-21859

PATIENT
  Age: 21 Year
  Sex: Female

DRUGS (3)
  1. PARACETAMOL (UNKNOWN) (PARACETAMOL) UNK, UNKUNK [Suspect]
     Indication: DRUG USE FOR UNKNOWN INDICATION
  2. ALCOHOL [Suspect]
     Dosage: (previous day)
  3. METHYLENEDIOXYMETHAMPHETAMINE [Suspect]

REACTIONS (3)
  - Toxicity to various agents [None]
  - Hepatic function abnormal [None]
  - Overdose [None]
